FAERS Safety Report 6908927-3 (Version None)
Quarter: 2010Q3

REPORT INFORMATION
  Report Type: 
  Country: None (occurrence: None)
  Receive Date: 20100805
  Receipt Date: 20100728
  Transmission Date: 20110219
  Serious: Yes (Other)
  Sender: FDA-Public Use
  Company Number: CA-JNJFOC-20100709074

PATIENT
  Age: 58 Year
  Sex: Female
  Weight: 67.9 kg

DRUGS (19)
  1. GOLIMUMAB [Suspect]
     Indication: RHEUMATOID ARTHRITIS
     Route: 058
  2. METHOTREXATE [Concomitant]
     Indication: RHEUMATOID ARTHRITIS
     Route: 058
  3. CHLOROQUINE PHOSPHATE [Concomitant]
     Indication: RHEUMATOID ARTHRITIS
     Route: 048
  4. LEFLUNOMIDE [Concomitant]
     Indication: RHEUMATOID ARTHRITIS
     Route: 048
  5. TYLENOL (CAPLET) [Concomitant]
     Indication: RHEUMATOID ARTHRITIS
     Route: 048
  6. CITALOPRAM [Concomitant]
     Indication: DEPRESSION
     Route: 048
  7. LOVAZA [Concomitant]
     Indication: MEDICAL DIET
     Route: 048
  8. MULTI-VITAMINS [Concomitant]
     Indication: MEDICAL DIET
     Route: 048
  9. CALCIUM CITRATE [Concomitant]
     Indication: MEDICAL DIET
     Route: 048
  10. VITAMIN D3 [Concomitant]
     Indication: MEDICAL DIET
     Route: 048
  11. SALMON OIL [Concomitant]
     Indication: MEDICAL DIET
     Route: 048
  12. OXYCODONE HCL AND ACETAMINOPHEN [Concomitant]
     Indication: PAIN
     Route: 048
  13. DARVON-N [Concomitant]
     Indication: PAIN
     Route: 048
  14. CODEINE [Concomitant]
     Indication: PAIN
     Route: 048
  15. TRAMADOL HCL [Concomitant]
     Indication: PAIN
     Route: 048
  16. RABEPRAZOLE SODIUM [Concomitant]
     Indication: ABDOMINAL PAIN UPPER
     Route: 048
  17. CLONIDINE [Concomitant]
     Indication: HOT FLUSH
     Route: 048
  18. FOLIC ACID [Concomitant]
     Route: 048
  19. ADVIL COLD AND SINUS [Concomitant]
     Route: 048

REACTIONS (1)
  - OSTEOMYELITIS [None]
